FAERS Safety Report 8310208-0 (Version None)
Quarter: 2012Q2

REPORT INFORMATION
  Report Type: 
  Country: None (occurrence: None)
  Receive Date: 20120425
  Receipt Date: 20120411
  Transmission Date: 20120825
  Serious: Yes (Congenital Anomaly)
  Sender: FDA-Public Use
  Company Number: CH-MYLANLABS-2012S1007807

PATIENT
  Sex: Male
  Weight: 2 kg

DRUGS (4)
  1. METOPROLOL TARTRATE [Concomitant]
     Route: 065
  2. HYDROXYCHLOROQUINE SULFATE [Concomitant]
     Route: 065
  3. NIFEDIPINE [Concomitant]
     Route: 065
  4. LOSARTAN POTASSIUM [Suspect]
     Dosage: 50 MG/DAY
     Route: 065

REACTIONS (3)
  - MATERNAL EXPOSURE DURING PREGNANCY [None]
  - RENAL DISORDER [None]
  - FOETAL GROWTH RESTRICTION [None]
